FAERS Safety Report 5501275-8 (Version None)
Quarter: 2007Q4

REPORT INFORMATION
  Report Type: 
  Country: None (occurrence: None)
  Receive Date: 20071029
  Receipt Date: 20071017
  Transmission Date: 20080405
  Serious: Yes (Death, Hospitalization)
  Sender: FDA-Public Use
  Company Number: JP-PFIZER INC-2007088499

PATIENT
  Age: 75 Year
  Sex: Male

DRUGS (6)
  1. ADRIAMYCIN PFS [Suspect]
     Indication: LEUKAEMIA PLASMACYTIC
  2. VINCRISTINE [Suspect]
     Indication: LEUKAEMIA PLASMACYTIC
  3. DEXAMETHASONE 0.5MG TAB [Suspect]
     Indication: LEUKAEMIA PLASMACYTIC
  4. MELPHALAN [Suspect]
     Indication: LEUKAEMIA PLASMACYTIC
  5. PREDNISONE [Suspect]
     Indication: LEUKAEMIA PLASMACYTIC
  6. CYCLOPHOSPHAMIDE [Suspect]
     Indication: LEUKAEMIA PLASMACYTIC

REACTIONS (5)
  - CLOSTRIDIUM DIFFICILE COLITIS [None]
  - MELAENA [None]
  - NUTRITIONAL CONDITION ABNORMAL [None]
  - PNEUMONIA ASPIRATION [None]
  - RECTAL HAEMORRHAGE [None]
